FAERS Safety Report 8578421-5 (Version None)
Quarter: 2012Q3

REPORT INFORMATION
  Report Type: 
  Country: None (occurrence: None)
  Receive Date: 20120808
  Receipt Date: 20120730
  Transmission Date: 20120928
  Serious: Yes (Hospitalization, Other)
  Sender: FDA-Public Use
  Company Number: US-JNJFOC-20111210646

PATIENT
  Sex: Female
  Weight: 86.18 kg

DRUGS (11)
  1. FENTANYL-100 [Suspect]
     Indication: PAIN
     Dosage: NDC# 0781-7243-55
     Route: 062
     Dates: start: 20110201
  2. FENTANYL [Suspect]
     Route: 062
  3. FENTANYL [Suspect]
     Route: 062
  4. METHADONE HYDROCHLORIDE [Concomitant]
     Indication: ARTHROPATHY
     Route: 048
  5. FENTANYL [Suspect]
     Route: 062
     Dates: start: 20070101
  6. FENTANYL [Suspect]
     Indication: PAIN
     Route: 062
     Dates: end: 20110201
  7. FENTANYL [Suspect]
     Route: 062
  8. FENTANYL [Suspect]
     Route: 062
     Dates: start: 20090101
  9. SOMA [Concomitant]
     Indication: MUSCLE SPASMS
     Dosage: 350 MG 1/2 TABLET
     Route: 048
  10. METHADONE HYDROCHLORIDE [Concomitant]
     Indication: FRACTURE
     Route: 048
  11. OXYCODONE HCL AND ACETAMINOPHEN [Concomitant]
     Indication: PAIN
     Route: 048

REACTIONS (18)
  - TRANSIENT ISCHAEMIC ATTACK [None]
  - OESOPHAGEAL DISORDER [None]
  - ARTHROPATHY [None]
  - CEREBROVASCULAR ACCIDENT [None]
  - OESOPHAGEAL HAEMORRHAGE [None]
  - DRUG INEFFECTIVE [None]
  - WRONG TECHNIQUE IN DRUG USAGE PROCESS [None]
  - FALL [None]
  - GAIT DISTURBANCE [None]
  - CARPAL TUNNEL SYNDROME [None]
  - AMNESIA [None]
  - PARALYSIS [None]
  - IRRITABLE BOWEL SYNDROME [None]
  - HEART RATE ABNORMAL [None]
  - PRODUCT QUALITY ISSUE [None]
  - BLOOD GLUCOSE DECREASED [None]
  - BALANCE DISORDER [None]
  - APPLICATION SITE URTICARIA [None]
